FAERS Safety Report 7421847 (Version 2)
Quarter: 2012Q4

REPORT INFORMATION
  Report Type: 
  Country: US (occurrence: US)
  Receive Date: 20100616
  Receipt Date: 20121107
  Transmission Date: 20130627
  Serious: Yes (Other)
  Sender: FDA-Public Use
  Company Number: US-ASTRAZENECA-2010SE03408

PATIENT
  Sex: Female

DRUGS (4)
  1. PULMICORT FLEXHALER [Suspect]
     Route: 055
  2. NEXIUM [Suspect]
     Route: 048
  3. TOPROL XL [Suspect]
     Route: 048
  4. SYMBICORT [Concomitant]
     Route: 055

REACTIONS (6)
  - Lymphoma [Unknown]
  - Muscle tightness [Recovering/Resolving]
  - Chest discomfort [Recovering/Resolving]
  - Weight decreased [Unknown]
  - Hypoacusis [Unknown]
  - Activities of daily living impaired [Unknown]
